FAERS Safety Report 9397931 (Version 1)
Quarter: 2013Q3

REPORT INFORMATION
  Report Type: Spontaneous
  Country: CN (occurrence: None)
  Receive Date: 20130709
  Receipt Date: 20130709
  Transmission Date: 20140515
  Serious: Yes (Other)
  Sender: FDA-Public Use
  Company Number: 2013P1011210

PATIENT
  Age: 56 Year
  Sex: Female
  Weight: 61.87 kg

DRUGS (1)
  1. CEFTAZIDIME [Suspect]
     Indication: INFECTION
     Route: 042
     Dates: start: 20120417, end: 20120420

REACTIONS (6)
  - Psychotic disorder [None]
  - Foaming at mouth [None]
  - Pupils unequal [None]
  - Blood pressure decreased [None]
  - Cerebrovascular accident [None]
  - Ketoacidosis [None]
